FAERS Safety Report 10054590 (Version 2)
Quarter: 2014Q2

REPORT INFORMATION
  Report Type: Spontaneous
  Country: US (occurrence: US)
  Receive Date: 20140402
  Receipt Date: 20140602
  Transmission Date: 20141212
  Serious: No
  Sender: FDA-Public Use
  Company Number: US-AMGEN-USASP2014019214

PATIENT
  Age: 37 Year
  Sex: Female
  Weight: 73.47 kg

DRUGS (3)
  1. ENBREL [Suspect]
     Indication: RHEUMATOID ARTHRITIS
     Dosage: 50 MG, ONCE
     Route: 058
     Dates: start: 20140210, end: 20140317
  2. FOLIC ACID [Concomitant]
     Dosage: 1 MG, 2 TABLETS DAILY
     Route: 048
  3. METHOTREXATE [Concomitant]
     Dosage: 2.5 MG, 7 TABLETS ONCE A WEEK
     Route: 048

REACTIONS (12)
  - Rheumatoid arthritis [Unknown]
  - Anti-cyclic citrullinated peptide antibody positive [Unknown]
  - Cough [Unknown]
  - Rash [Unknown]
  - Arthropathy [Unknown]
  - Palpitations [Unknown]
  - Skin reaction [Unknown]
  - Erythema [Unknown]
  - Injection site bruising [Unknown]
  - Injection site erythema [Unknown]
  - Injection site swelling [Unknown]
  - Injection site discolouration [Unknown]
